FAERS Safety Report 9678489 (Version 1)
Quarter: 2013Q4

REPORT INFORMATION
  Report Type: Spontaneous
  Country: BR (occurrence: BR)
  Receive Date: 20131108
  Receipt Date: 20131108
  Transmission Date: 20140711
  Serious: Yes (Other)
  Sender: FDA-Public Use
  Company Number: BR-SA-2013SA111940

PATIENT
  Age: 75 Year
  Sex: Female
  Weight: 63 kg

DRUGS (9)
  1. LANTUS [Suspect]
     Indication: TYPE 2 DIABETES MELLITUS
     Route: 058
     Dates: start: 2011
  2. ENALAPRIL MALEATE W/HYDROCHLOROTIAZIDE [Concomitant]
     Indication: CARDIAC DISORDER
     Dosage: STRENGTH: 20 MG
     Route: 048
     Dates: start: 2007
  3. IBUPROFEN [Concomitant]
     Indication: PAIN
     Dosage: STRENGTH: 600 MG
     Route: 048
     Dates: start: 201310
  4. OLCADIL [Concomitant]
     Dosage: STRENGTH: 2 MG
     Route: 048
  5. FOLIC ACID/IRON [Concomitant]
     Indication: ANAEMIA
     Dosage: STRENGTH: 50 MG
     Route: 048
  6. SIMVASTATIN [Concomitant]
     Indication: BLOOD CHOLESTEROL
     Route: 048
     Dates: start: 2007
  7. GALVUS MET [Concomitant]
     Indication: TYPE 2 DIABETES MELLITUS
     Route: 048
     Dates: start: 2007
  8. AMLODIPINE/VALSARTAN [Concomitant]
     Indication: CARDIAC DISORDER
     Dosage: STRENGTH: 320/5 MG
     Route: 048
     Dates: start: 2006
  9. CLIKSTAR [Concomitant]
     Dates: start: 2011

REACTIONS (7)
  - Eye operation [Unknown]
  - Urinary tract infection [Recovering/Resolving]
  - Bladder pain [Recovering/Resolving]
  - Fall [Recovering/Resolving]
  - Arthralgia [Recovering/Resolving]
  - Pyrexia [Recovering/Resolving]
  - Pain [Recovering/Resolving]
